FAERS Safety Report 25762647 (Version 1)
Quarter: 2025Q3

REPORT INFORMATION
  Report Type: Spontaneous
  Country: US (occurrence: US)
  Receive Date: 20250904
  Receipt Date: 20250904
  Transmission Date: 20251021
  Serious: No
  Sender: MERCK SHARP & DOHME LLC
  Company Number: US-009507513-2322316

PATIENT
  Age: 66 Year
  Sex: Male

DRUGS (2)
  1. SUVOREXANT [Suspect]
     Active Substance: SUVOREXANT
     Indication: Insomnia
     Route: 048
     Dates: start: 202501
  2. SUVOREXANT [Suspect]
     Active Substance: SUVOREXANT
     Indication: Insomnia
     Route: 048
     Dates: start: 2025

REACTIONS (2)
  - Drug ineffective [Not Recovered/Not Resolved]
  - Intentional product misuse [Unknown]

NARRATIVE: CASE EVENT DATE: 20250101
